FAERS Safety Report 9782711 (Version 1)
Quarter: 2013Q4

REPORT INFORMATION
  Report Type: Spontaneous
  Country: US (occurrence: None)
  Receive Date: 20131224
  Receipt Date: 20131224
  Transmission Date: 20140711
  Serious: Yes (Other)
  Sender: FDA-Public Use
  Company Number: None

PATIENT
  Age: 21 Year
  Sex: Male
  Weight: 53 kg

DRUGS (1)
  1. TOBI POD HALER [Suspect]
     Indication: PSEUDOMONAS INFECTION
     Dates: start: 20131126, end: 20131220

REACTIONS (1)
  - Tinnitus [None]
